FAERS Safety Report 9173919 (Version 1)
Quarter: 2013Q1

REPORT INFORMATION
  Report Type: Spontaneous
  Country: US (occurrence: US)
  Receive Date: 20130320
  Receipt Date: 20130320
  Transmission Date: 20140127
  Serious: No
  Sender: FDA-Public Use
  Company Number: US-GALDERMA-US-GDP-12412994

PATIENT
  Age: 61 Year
  Sex: Female
  Weight: 73 kg

DRUGS (2)
  1. VECTICAL [Suspect]
     Indication: PSORIASIS
     Route: 061
     Dates: start: 20120207, end: 20120208
  2. ALBUTEROL [Concomitant]
     Indication: ASTHMA
     Route: 055

REACTIONS (2)
  - Pruritus [Recovered/Resolved]
  - Skin discomfort [Not Recovered/Not Resolved]
